FAERS Safety Report 9522184 (Version 4)
Quarter: 2013Q4

REPORT INFORMATION
  Report Type: Spontaneous
  Country: FR (occurrence: FR)
  Receive Date: 20130913
  Receipt Date: 20131101
  Transmission Date: 20140711
  Serious: Yes (Other)
  Sender: FDA-Public Use
  Company Number: FR-CELGENEUS-056-20785-13053341

PATIENT
  Age: 78 Year
  Sex: Female
  Weight: 80 kg

DRUGS (3)
  1. THALIDOMIDE [Suspect]
     Indication: PLASMA CELL MYELOMA
     Dosage: 100 MILLIGRAM
     Route: 048
     Dates: start: 20130318, end: 20130511
  2. SOLUPRED [Suspect]
     Indication: PLASMA CELL MYELOMA
     Dosage: 2 MILLIGRAM/KILOGRAM
     Route: 065
     Dates: start: 20130420, end: 20130502
  3. MELPHALAN [Suspect]
     Indication: PLASMA CELL MYELOMA
     Dosage: 68 MILLIGRAM
     Route: 065
     Dates: start: 20130420, end: 20130502

REACTIONS (4)
  - Colitis [Recovered/Resolved]
  - Abdominal pain [Recovered/Resolved]
  - Rash papular [Recovered/Resolved]
  - Malaise [Recovered/Resolved]
